FAERS Safety Report 20661433 (Version 3)
Quarter: 2022Q2

REPORT INFORMATION
  Report Type: Spontaneous
  Country: US (occurrence: US)
  Receive Date: 20220401
  Receipt Date: 20220419
  Transmission Date: 20220721
  Serious: Yes (Life-Threatening, Hospitalization, Other)
  Sender: FDA-Public Use
  Company Number: US-MLMSERVICE-20220316-3428649-1

PATIENT
  Age: 8 Year
  Sex: Female

DRUGS (5)
  1. AZITHROMYCIN [Suspect]
     Active Substance: AZITHROMYCIN
     Indication: Myocarditis
     Dosage: 10 MILLIGRAM/KILOGRAM (OVER 60 MINUTES)
     Route: 042
  2. EPINEPHRINE [Concomitant]
     Active Substance: EPINEPHRINE
     Indication: Product used for unknown indication
     Dosage: UNK (LOW-DOSE)
     Route: 065
  3. FUROSEMIDE [Concomitant]
     Active Substance: FUROSEMIDE
     Indication: Product used for unknown indication
     Dosage: UNK
     Route: 065
  4. NITROPRUSSIDE [Concomitant]
     Active Substance: NITROPRUSSIDE
     Indication: Product used for unknown indication
     Dosage: UNK
     Route: 065
  5. MILRINONE [Concomitant]
     Active Substance: MILRINONE
     Indication: Product used for unknown indication
     Dosage: UNK
     Route: 065

REACTIONS (2)
  - Hypotension [Recovered/Resolved]
  - Cardiac arrest [Unknown]
